FAERS Safety Report 20371303 (Version 1)
Quarter: 2022Q1

REPORT INFORMATION
  Report Type: Spontaneous
  Country: AU (occurrence: AU)
  Receive Date: 20220124
  Receipt Date: 20220124
  Transmission Date: 20220423
  Serious: Yes (Hospitalization)
  Sender: FDA-Public Use
  Company Number: AU-CELGENE-AUS-20220105142

PATIENT
  Age: 86 Year
  Sex: Male
  Weight: 78 kg

DRUGS (22)
  1. AZACITIDINE [Suspect]
     Active Substance: AZACITIDINE
     Indication: Acute myeloid leukaemia
     Dosage: 146 MILLIGRAM
     Route: 041
     Dates: start: 20211129
  2. AZACITIDINE [Suspect]
     Active Substance: AZACITIDINE
     Dosage: 144 MILLIGRAM
     Route: 041
     Dates: start: 20220105
  3. BGB-11417 [Suspect]
     Active Substance: BGB-11417
     Indication: Acute myeloid leukaemia
     Dosage: 20 MILLIGRAM
     Route: 048
     Dates: start: 20211130
  4. BGB-11417 [Suspect]
     Active Substance: BGB-11417
     Route: 048
     Dates: start: 20220110
  5. FILGRASTIM [Concomitant]
     Active Substance: FILGRASTIM
     Indication: Product used for unknown indication
     Route: 065
     Dates: start: 20211229
  6. PRAZOSIN [Concomitant]
     Active Substance: PRAZOSIN
     Indication: Product used for unknown indication
     Route: 065
     Dates: start: 2004
  7. TRANEXAMIC ACID [Concomitant]
     Active Substance: TRANEXAMIC ACID
     Indication: Product used for unknown indication
     Route: 065
     Dates: start: 20211229
  8. GRANISETRON [Concomitant]
     Active Substance: GRANISETRON
     Indication: Product used for unknown indication
     Route: 065
     Dates: start: 20211129
  9. MIDAZOLAM [Concomitant]
     Active Substance: MIDAZOLAM
     Indication: Product used for unknown indication
     Route: 065
     Dates: start: 20211222, end: 20211222
  10. PERINDOPRIL [Concomitant]
     Active Substance: PERINDOPRIL
     Indication: Product used for unknown indication
     Route: 065
     Dates: start: 2004
  11. FENTANYL [Concomitant]
     Active Substance: FENTANYL
     Indication: Product used for unknown indication
     Route: 065
     Dates: start: 20211222, end: 20211222
  12. PIPERACILLIN SODIUM\TAZOBACTAM SODIUM [Concomitant]
     Active Substance: PIPERACILLIN SODIUM\TAZOBACTAM SODIUM
     Indication: Product used for unknown indication
     Route: 065
     Dates: start: 20211229, end: 20211231
  13. HYDROCORTISONE [Concomitant]
     Active Substance: HYDROCORTISONE
     Indication: Product used for unknown indication
     Route: 065
     Dates: start: 20211231, end: 20211231
  14. ACETAMINOPHEN [Concomitant]
     Active Substance: ACETAMINOPHEN
     Indication: Product used for unknown indication
     Route: 065
     Dates: start: 20211231, end: 20211231
  15. CETIRIZINE [Concomitant]
     Active Substance: CETIRIZINE HYDROCHLORIDE
     Indication: Product used for unknown indication
     Route: 065
     Dates: start: 20211231, end: 20211231
  16. CALCIUM SODIUM LACTATE [Concomitant]
     Indication: Product used for unknown indication
     Route: 065
     Dates: start: 20211229, end: 20211229
  17. AMOXICILLIN\CLAVULANIC ACID [Concomitant]
     Active Substance: AMOXICILLIN\CLAVULANIC ACID
     Indication: Product used for unknown indication
     Route: 065
     Dates: start: 20211231, end: 20220105
  18. LERCANIDIPINE [Concomitant]
     Active Substance: LERCANIDIPINE
     Indication: Product used for unknown indication
     Route: 065
     Dates: start: 2021
  19. DEFERASIROX [Concomitant]
     Active Substance: DEFERASIROX
     Indication: Product used for unknown indication
     Route: 065
     Dates: start: 20210901
  20. ALLOPURINOL [Concomitant]
     Active Substance: ALLOPURINOL
     Indication: Product used for unknown indication
     Route: 065
     Dates: start: 20211126, end: 20211229
  21. OENOTHERA BIENNIS [Concomitant]
     Active Substance: OENOTHERA BIENNIS
     Indication: Product used for unknown indication
     Route: 065
     Dates: start: 20211201
  22. VALACYCLOVIR HYDROCHLORIDE [Concomitant]
     Active Substance: VALACYCLOVIR HYDROCHLORIDE
     Indication: Product used for unknown indication
     Route: 065
     Dates: start: 20211129

REACTIONS (2)
  - Urinary retention [Not Recovered/Not Resolved]
  - Constipation [Not Recovered/Not Resolved]
